FAERS Safety Report 6197218-7 (Version None)
Quarter: 2009Q2

REPORT INFORMATION
  Report Type: 
  Country: None (occurrence: None)
  Receive Date: 20090521
  Receipt Date: 20080121
  Transmission Date: 20091009
  Serious: Yes (Hospitalization, Other)
  Sender: FDA-Public Use
  Company Number: US-ASTRAZENECA-2006UW07698

PATIENT
  Age: 12003 Day
  Sex: Female
  Weight: 78.9 kg

DRUGS (34)
  1. SEROQUEL [Suspect]
     Indication: BIPOLAR DISORDER
     Route: 048
     Dates: start: 20040601, end: 20060101
  2. SEROQUEL [Suspect]
     Dosage: 25-100MG
     Route: 048
     Dates: start: 20040610
  3. INDERAL [Concomitant]
     Dosage: 10-80 MG
     Route: 065
  4. EXCEDRIN [Concomitant]
     Route: 048
  5. DEMEROL [Concomitant]
     Route: 042
  6. KLONOPIN [Concomitant]
     Indication: ANXIETY
     Route: 065
  7. MORPHINE [Concomitant]
     Route: 042
  8. FENTANYL [Concomitant]
     Route: 042
  9. TYLOX [Concomitant]
     Route: 048
  10. PHENERGAN [Concomitant]
     Indication: NAUSEA
     Route: 065
  11. LABETALOL HCL [Concomitant]
     Route: 065
  12. TRAMADOL HCL [Concomitant]
     Route: 065
  13. AMOXICILLIN [Concomitant]
     Route: 065
  14. GENTAMYCIN SULFATE [Concomitant]
     Route: 065
  15. ATIVAN [Concomitant]
     Route: 065
     Dates: start: 20060109
  16. ZYPREXA [Concomitant]
     Indication: DEPRESSION
     Route: 065
  17. CLONIDINE [Concomitant]
     Route: 065
  18. AMBIEN [Concomitant]
     Indication: INSOMNIA
     Dosage: 5-10 MG
     Route: 065
  19. ZOLOFT [Concomitant]
     Route: 065
  20. PROZAC [Concomitant]
     Route: 065
  21. PAXIL [Concomitant]
     Route: 065
  22. KETOROLAC [Concomitant]
     Route: 065
  23. ESTRADIOL [Concomitant]
     Route: 065
  24. LEVAQUIN [Concomitant]
     Dosage: 250-500 MG
     Route: 048
  25. PROTONIX [Concomitant]
     Route: 065
  26. POTASSIUM CHLORIDE [Concomitant]
     Route: 048
  27. PROPOXYPHENE HCL CAP [Concomitant]
     Route: 065
  28. WELLBUTRIN [Concomitant]
     Dosage: 150-300 MG
     Route: 065
  29. FIORICET [Concomitant]
     Indication: HEADACHE
     Dosage: EVERY 4 HOURS
     Route: 048
  30. ZESTRIL [Concomitant]
     Route: 065
  31. DILANTIN [Concomitant]
     Route: 065
  32. LOVENOX [Concomitant]
     Dosage: 10-40 MG
     Route: 065
  33. VICODIN [Concomitant]
     Route: 065
  34. SKELAXIN [Concomitant]
     Route: 065

REACTIONS (18)
  - ABDOMINAL PAIN LOWER [None]
  - ALTERED STATE OF CONSCIOUSNESS [None]
  - BACK PAIN [None]
  - BIPOLAR DISORDER [None]
  - CONVERSION DISORDER [None]
  - DIABETES MELLITUS [None]
  - FLANK PAIN [None]
  - HAEMORRHOIDS [None]
  - HEADACHE [None]
  - HERPES SIMPLEX [None]
  - INJURY [None]
  - LYMPHADENOPATHY [None]
  - NECK PAIN [None]
  - PANIC ATTACK [None]
  - PELVIC PAIN [None]
  - PYELONEPHRITIS [None]
  - TUBERCULOSIS [None]
  - VAGINAL HAEMORRHAGE [None]
